FAERS Safety Report 14618011 (Version 1)
Quarter: 2018Q1

REPORT INFORMATION
  Report Type: Spontaneous
  Country: US (occurrence: US)
  Receive Date: 20180309
  Receipt Date: 20180309
  Transmission Date: 20180509
  Serious: Yes (Other)
  Sender: FDA-Public Use
  Company Number: US-PTC THERAPEUTICS, INC.-US-2017PTC001472

PATIENT

DRUGS (6)
  1. MULTIVITAMIN                       /00097801/ [Concomitant]
     Active Substance: VITAMINS
     Indication: PRODUCT USED FOR UNKNOWN INDICATION
  2. VITAMIN D                          /00107901/ [Concomitant]
     Active Substance: ERGOCALCIFEROL
     Indication: PRODUCT USED FOR UNKNOWN INDICATION
     Dosage: 400 IU, QD
  3. FISH OIL [Concomitant]
     Active Substance: FISH OIL
     Indication: PRODUCT USED FOR UNKNOWN INDICATION
  4. EMFLAZA [Suspect]
     Active Substance: DEFLAZACORT
     Indication: DUCHENNE MUSCULAR DYSTROPHY
     Dosage: 12 MG, QD
     Route: 048
     Dates: start: 20170711, end: 20171211
  5. EMFLAZA [Suspect]
     Active Substance: DEFLAZACORT
     Dosage: 12 MG, QD
     Route: 048
     Dates: start: 20170721, end: 20171211
  6. EMFLAZA [Suspect]
     Active Substance: DEFLAZACORT
     Dosage: 12 MG, UNK
     Dates: start: 201801

REACTIONS (3)
  - Drug administered to patient of inappropriate age [Unknown]
  - Cushing^s syndrome [Recovered/Resolved]
  - Pyrexia [Unknown]

NARRATIVE: CASE EVENT DATE: 20171212
